FAERS Safety Report 23717436 (Version 3)
Quarter: 2024Q3

REPORT INFORMATION
  Report Type: Spontaneous
  Country: US (occurrence: US)
  Receive Date: 20240408
  Receipt Date: 20240806
  Transmission Date: 20241017
  Serious: Yes (Other)
  Sender: SANOFI AVENTIS
  Company Number: US-SA-2024SA027119

PATIENT
  Age: 76 Year
  Sex: Female

DRUGS (1)
  1. DUPIXENT [Suspect]
     Active Substance: DUPILUMAB
     Indication: Dermatitis atopic
     Dosage: 300 MG, QOW
     Route: 058

REACTIONS (11)
  - Diabetes mellitus [Not Recovered/Not Resolved]
  - Hypoaesthesia [Unknown]
  - Vision blurred [Unknown]
  - Dry eye [Unknown]
  - Eye irritation [Unknown]
  - Fungal infection [Unknown]
  - Sleep disorder due to a general medical condition [Unknown]
  - Eczema [Unknown]
  - Dry skin [Unknown]
  - Pruritus [Recovering/Resolving]
  - Arthralgia [Unknown]
